FAERS Safety Report 21177694 (Version 2)
Quarter: 2022Q3

REPORT INFORMATION
  Report Type: Spontaneous
  Country: US (occurrence: US)
  Receive Date: 20220805
  Receipt Date: 20220901
  Transmission Date: 20221026
  Serious: Yes (Other)
  Sender: FDA-Public Use
  Company Number: US-PFIZER INC-202201034187

PATIENT
  Age: 31 Year
  Sex: Male

DRUGS (1)
  1. XELJANZ [Suspect]
     Active Substance: TOFACITINIB CITRATE
     Dosage: UNK

REACTIONS (5)
  - Colitis ulcerative [Unknown]
  - Frequent bowel movements [Unknown]
  - Condition aggravated [Unknown]
  - Product dose omission issue [Unknown]
  - Intentional product misuse [Unknown]
